FAERS Safety Report 21756058 (Version 1)
Quarter: 2022Q4

REPORT INFORMATION
  Report Type: Spontaneous
  Country: US (occurrence: None)
  Receive Date: 20221219
  Receipt Date: 20221219
  Transmission Date: 20230113
  Serious: Yes (Hospitalization)
  Sender: FDA-Public Use
  Company Number: None

PATIENT
  Sex: Female

DRUGS (3)
  1. DEVICE [Suspect]
     Active Substance: DEVICE
     Indication: Pulmonary arterial hypertension
     Route: 042
     Dates: start: 20221207
  2. VELETRI [Suspect]
     Active Substance: EPOPROSTENOL
  3. UPTRAVI [Suspect]
     Active Substance: SELEXIPAG
     Indication: Pulmonary arterial hypertension
     Route: 042
     Dates: start: 20221207

REACTIONS (4)
  - Dyspnoea [None]
  - Recalled product administered [None]
  - Infusion related reaction [None]
  - Drug ineffective [None]
